FAERS Safety Report 9486221 (Version 2)
Quarter: 2013Q3

REPORT INFORMATION
  Report Type: Spontaneous
  Country: CN (occurrence: CN)
  Receive Date: 20130829
  Receipt Date: 20130905
  Transmission Date: 20140515
  Serious: Yes (Hospitalization)
  Sender: FDA-Public Use
  Company Number: CN-PFIZER INC-2013248665

PATIENT
  Age: 18 Year
  Sex: Male
  Weight: 65.5 kg

DRUGS (2)
  1. SOLU-MEDROL [Suspect]
     Indication: NEPHROTIC SYNDROME
     Dosage: 40 MG, 1X/DAY
     Route: 041
     Dates: start: 20120628, end: 20120709
  2. CEFTRIAXONE [Suspect]
     Indication: PHARYNGITIS
     Dosage: 2.0 (UNITS UNSPECIFIED) 1X/DAY
     Route: 041

REACTIONS (2)
  - Hepatic function abnormal [Recovering/Resolving]
  - Alanine aminotransferase increased [Recovering/Resolving]
